FAERS Safety Report 4322600-X (Version None)
Quarter: 2004Q1

REPORT INFORMATION
  Report Type: 
  Country: None (occurrence: None)
  Receive Date: 20040319
  Receipt Date: 20040315
  Transmission Date: 20041129
  Serious: Yes (Death)
  Sender: FDA-Public Use
  Company Number: 200410140BNE

PATIENT
  Age: 18 Year
  Sex: Female

DRUGS (2)
  1. CIPROFLOXACIN [Suspect]
     Indication: URINARY TRACT INFECTION
     Dates: end: 20030907
  2. ERYTHROMYCIN [Concomitant]

REACTIONS (3)
  - ABORTION SPONTANEOUS [None]
  - MYOCARDITIS [None]
  - SEPSIS [None]
